FAERS Safety Report 16029124 (Version 1)
Quarter: 2019Q1

REPORT INFORMATION
  Report Type: Spontaneous
  Country: JP (occurrence: JP)
  Receive Date: 20190304
  Receipt Date: 20190304
  Transmission Date: 20190418
  Serious: Yes (Death)
  Sender: FDA-Public Use
  Company Number: JP-BAYER-2019-040288

PATIENT
  Sex: Female

DRUGS (5)
  1. FLOLAN [Concomitant]
     Active Substance: EPOPROSTENOL SODIUM
  2. UPTRAVI [Concomitant]
     Active Substance: SELEXIPAG
     Dosage: 0.4 MG
  3. OXYGEN. [Concomitant]
     Active Substance: OXYGEN
  4. OPSUMIT [Concomitant]
     Active Substance: MACITENTAN
     Dosage: 5 MG
  5. ADEMPAS [Suspect]
     Active Substance: RIOCIGUAT
     Indication: PULMONARY ARTERIAL HYPERTENSION
     Dosage: DAILY DOSE 3 MG
     Route: 048
     Dates: start: 201901, end: 20190223

REACTIONS (2)
  - Cardiac failure [Fatal]
  - Pulmonary arterial hypertension [Fatal]

NARRATIVE: CASE EVENT DATE: 201902
